FAERS Safety Report 10544006 (Version 1)
Quarter: 2014Q4

REPORT INFORMATION
  Report Type: Spontaneous
  Country: US (occurrence: None)
  Receive Date: 20141024
  Receipt Date: 20141024
  Transmission Date: 20150529
  Serious: No
  Sender: FDA-Public Use
  Company Number: None

PATIENT
  Age: 26 Year
  Sex: Female

DRUGS (1)
  1. LUPANETA PACK [Suspect]
     Active Substance: ISOPROPYL ALCOHOL\LEUPROLIDE ACETATE\NORETHINDRONE ACETATE
     Dosage: ONCE MONTHLY, IM INJECTION PO, IM AND ORAL FOR TABLET
     Route: 048

REACTIONS (4)
  - Abdominal discomfort [None]
  - Crying [None]
  - Acne [None]
  - Emotional disorder [None]

NARRATIVE: CASE EVENT DATE: 20141010
